APPROVED DRUG PRODUCT: OMEPRAZOLE AND SODIUM BICARBONATE
Active Ingredient: OMEPRAZOLE; SODIUM BICARBONATE
Strength: 40MG/PACKET;1.68GM/PACKET
Dosage Form/Route: FOR SUSPENSION;ORAL
Application: A205545 | Product #002 | TE Code: AB
Applicant: AJANTA PHARMA LTD
Approved: Jul 27, 2016 | RLD: No | RS: Yes | Type: RX